FAERS Safety Report 6235729-6 (Version None)
Quarter: 2009Q2

REPORT INFORMATION
  Report Type: 
  Country: None (occurrence: None)
  Receive Date: 20090619
  Receipt Date: 20070724
  Transmission Date: 20091009
  Serious: Yes (Other)
  Sender: FDA-Public Use
  Company Number: US-ASTRAZENECA-2007UW12102

PATIENT
  Age: 18604 Day
  Sex: Male
  Weight: 102.1 kg

DRUGS (8)
  1. SEROQUEL [Suspect]
     Indication: INSOMNIA
     Route: 048
     Dates: start: 20020701, end: 20030630
  2. SEROQUEL [Suspect]
     Route: 048
     Dates: start: 20020828, end: 20030630
  3. SEROQUEL [Suspect]
     Route: 048
     Dates: start: 20020828, end: 20021217
  4. ZYPREXA [Concomitant]
     Dates: start: 20000101, end: 20010101
  5. RISPERDAL [Concomitant]
     Dates: start: 20030101
  6. LOVASTATIN [Concomitant]
     Indication: BLOOD CHOLESTEROL
     Route: 048
     Dates: start: 20020912
  7. METFORMIN HCL [Concomitant]
     Indication: DIABETES MELLITUS
     Route: 048
     Dates: start: 20020903
  8. ALBUTEROL / IPRATROP [Concomitant]
     Indication: ASTHMA
     Dosage: 90 / 18 MCG- 2 PUFFS FOUR TIMES A  DAY
     Route: 048
     Dates: start: 20000605

REACTIONS (2)
  - DIABETIC RETINOPATHY [None]
  - TYPE 2 DIABETES MELLITUS [None]
